FAERS Safety Report 19970208 (Version 2)
Quarter: 2021Q4

REPORT INFORMATION
  Report Type: Spontaneous
  Country: AU (occurrence: AU)
  Receive Date: 20211019
  Receipt Date: 20211021
  Transmission Date: 20220303
  Serious: Yes (Congenital Anomaly)
  Sender: FDA-Public Use
  Company Number: AU-ABBVIE-21K-008-4028243-00

PATIENT

DRUGS (3)
  1. VALPROIC ACID [Suspect]
     Active Substance: VALPROIC ACID
     Indication: Maternal exposure timing unspecified
     Dosage: DURING 1ST TRIMESTER OF PREGNANCY
     Route: 064
  2. VALPROIC ACID [Suspect]
     Active Substance: VALPROIC ACID
     Dosage: DURING 3RD TRIMESTER OF PREGNANCY
     Route: 064
  3. LAMOTRIGINE [Suspect]
     Active Substance: LAMOTRIGINE
     Indication: Maternal exposure timing unspecified
     Dosage: DURING 3RD TRIMESTER OF PREGNANCY
     Route: 064

REACTIONS (2)
  - Brachydactyly [Unknown]
  - Foetal exposure during pregnancy [Unknown]
